FAERS Safety Report 8543238-4 (Version None)
Quarter: 2012Q2

REPORT INFORMATION
  Report Type: 
  Country: None (occurrence: None)
  Receive Date: 20120412
  Receipt Date: 20090504
  Transmission Date: 20120825
  Serious: Yes (Other)
  Sender: FDA-Public Use
  Company Number: PHEH2008US04346

PATIENT
  Age: 56 Year
  Sex: Female

DRUGS (8)
  1. AREDIA [Suspect]
  2. FEMARA [Concomitant]
  3. FOSAMAX [Concomitant]
  4. VICODIN [Concomitant]
  5. MULTIVITAMINS (ASCORBIC ACID, ERGOCALCIFEROL, FOLIC ACID, NICOTINAMIDE [Concomitant]
  6. FLAGYL [Concomitant]
  7. AMOXICILLIN [Concomitant]
  8. CALCIUM CARBONATE [Concomitant]

REACTIONS (11)
  - TOOTH DISORDER [None]
  - PAIN [None]
  - INJURY [None]
  - ENDODONTIC PROCEDURE [None]
  - DENTAL CARIES [None]
  - OSTEONECROSIS [None]
  - TOOTH EXTRACTION [None]
  - ANXIETY [None]
  - DISABILITY [None]
  - GINGIVAL INFECTION [None]
  - ORAL INFECTION [None]
